FAERS Safety Report 21604562 (Version 12)
Quarter: 2023Q4

REPORT INFORMATION
  Report Type: Report from Study
  Country: US (occurrence: US)
  Receive Date: 20221116
  Receipt Date: 20231109
  Transmission Date: 20240109
  Serious: Yes (Other)
  Sender: FDA-Public Use
  Company Number: US-UCBSA-2022065562

PATIENT
  Age: 18 Year
  Sex: Male
  Weight: 81 kg

DRUGS (7)
  1. FINTEPLA [Suspect]
     Active Substance: FENFLURAMINE
     Indication: Severe myoclonic epilepsy of infancy
     Dosage: 5 ML EVERY MORNING AND 4.5 ML EVERY EVENING
     Dates: start: 20201220
  2. FINTEPLA [Suspect]
     Active Substance: FENFLURAMINE
     Indication: Idiopathic generalised epilepsy
     Dosage: 5ML QAM AND 4.5ML QPM
     Dates: start: 20211215
  3. FINTEPLA [Suspect]
     Active Substance: FENFLURAMINE
     Indication: Off label use
     Dosage: 5 ML EVERY MORNING AND 4.5 ML EVERY EVENING
  4. FINTEPLA [Suspect]
     Active Substance: FENFLURAMINE
     Dosage: 4.5 MILLILITER, 2X/DAY (BID)
     Dates: start: 20230928
  5. CLOBAZAM [Suspect]
     Active Substance: CLOBAZAM
     Indication: Product used for unknown indication
     Dosage: UNK
  6. CLOBAZAM [Suspect]
     Active Substance: CLOBAZAM
     Dosage: 15 MILLIGRAM, 2X/DAY (BID)
  7. ONFI [Concomitant]
     Active Substance: CLOBAZAM
     Indication: Epilepsy
     Dosage: 15 MILLIGRAM, 2X/DAY (BID),
     Route: 048
     Dates: start: 20231101

REACTIONS (13)
  - Tricuspid valve incompetence [Unknown]
  - Mitral valve incompetence [Unknown]
  - Seizure [Recovering/Resolving]
  - Pulmonary arterial pressure abnormal [Not Recovered/Not Resolved]
  - Echocardiogram abnormal [Not Recovered/Not Resolved]
  - Aggression [Recovering/Resolving]
  - Flushing [Recovering/Resolving]
  - Tremor [Recovering/Resolving]
  - Drooling [Recovering/Resolving]
  - Thinking abnormal [Recovering/Resolving]
  - Product use issue [Unknown]
  - Drug ineffective for unapproved indication [Unknown]
  - Off label use [Unknown]

NARRATIVE: CASE EVENT DATE: 20220516
